FAERS Safety Report 5746229-1 (Version None)
Quarter: 2008Q2

REPORT INFORMATION
  Report Type: 
  Country: None (occurrence: None)
  Receive Date: 20080522
  Receipt Date: 20080512
  Transmission Date: 20081010
  Serious: Yes (Disabling, Other)
  Sender: FDA-Public Use
  Company Number: US-KINGPHARMUSA00001-K200701567

PATIENT

DRUGS (1)
  1. EPIPEN [Suspect]
     Dosage: UNK, SINGLE
     Dates: start: 20070712, end: 20070712

REACTIONS (13)
  - ACCIDENTAL EXPOSURE [None]
  - BURNING SENSATION [None]
  - CARPAL TUNNEL SYNDROME [None]
  - EXPIRED DRUG ADMINISTERED [None]
  - HYPERTENSION [None]
  - HYPOAESTHESIA [None]
  - INJECTION SITE NODULE [None]
  - INJECTION SITE PAIN [None]
  - LIMB INJURY [None]
  - PAIN IN EXTREMITY [None]
  - PALPITATIONS [None]
  - PARAESTHESIA [None]
  - X-RAY ABNORMAL [None]
